FAERS Safety Report 8995035 (Version 1)
Quarter: 2012Q4

REPORT INFORMATION
  Report Type: Spontaneous
  Country: US (occurrence: None)
  Receive Date: 20121228
  Receipt Date: 20121228
  Transmission Date: 20130627
  Serious: No
  Sender: FDA-Public Use
  Company Number: None

PATIENT
  Sex: Female
  Weight: 17.6 kg

DRUGS (4)
  1. MERCAPTOPURINE [Suspect]
  2. METHOTREXATE [Suspect]
  3. DEXAMETHASONE [Suspect]
  4. VINCRISTINE SULFATE [Suspect]

REACTIONS (15)
  - Back pain [None]
  - Varicella [None]
  - Pyrexia [None]
  - Alanine aminotransferase increased [None]
  - Aspartate aminotransferase increased [None]
  - Abdominal pain [None]
  - Constipation [None]
  - Heart rate increased [None]
  - Respiration abnormal [None]
  - Abdominal rigidity [None]
  - Respiratory arrest [None]
  - Rash vesicular [None]
  - Sepsis [None]
  - Klebsiella test positive [None]
  - Acidosis [None]
